FAERS Safety Report 6272844-5 (Version None)
Quarter: 2009Q3

REPORT INFORMATION
  Report Type: 
  Country: None (occurrence: None)
  Receive Date: 20090717
  Receipt Date: 20090710
  Transmission Date: 20100115
  Serious: Yes (Other)
  Sender: FDA-Public Use
  Company Number: IE-ASTRAZENECA-2009SE04449

PATIENT
  Age: 79 Year
  Sex: Female

DRUGS (5)
  1. NEXIUM [Suspect]
     Indication: GASTRITIS
     Route: 048
     Dates: start: 20090610, end: 20090616
  2. CRESTOR [Concomitant]
     Route: 048
  3. ASPIRIN [Concomitant]
  4. COVERSYL PLUS [Concomitant]
  5. BISOCOR [Concomitant]

REACTIONS (1)
  - NIGHTMARE [None]
